FAERS Safety Report 6249556-7 (Version None)
Quarter: 2009Q2

REPORT INFORMATION
  Report Type: 
  Country: None (occurrence: None)
  Receive Date: 20090629
  Receipt Date: 20090623
  Transmission Date: 20091009
  Serious: Yes (Other)
  Sender: FDA-Public Use
  Company Number: US-BAYER-200911813BCC

PATIENT
  Age: 67 Year
  Sex: Male
  Weight: 88 kg

DRUGS (5)
  1. ALEVE (CAPLET) [Suspect]
     Indication: ARTHRALGIA
     Dosage: CONSUMER TOOK ONE AND HALF CAPLET BEFORE BED ON 08, 09 AND 10-JUN-2009
     Route: 048
     Dates: start: 20090608
  2. ALKA-SELTZER LEMON LIME EFFERVESCENT TABLETS [Suspect]
     Indication: BURNING SENSATION
     Dosage: TOTAL DAILY DOSE: 1 DF
     Route: 048
     Dates: start: 20090611
  3. ALKA-SELTZER LEMON LIME EFFERVESCENT TABLETS [Suspect]
     Dosage: TOTAL DAILY DOSE: 1 DF
     Route: 048
     Dates: start: 20090622
  4. METHYLPHENIDATE HCL [Concomitant]
     Indication: DISTURBANCE IN ATTENTION
     Route: 065
  5. IBUPROFEN [Concomitant]
     Indication: DRUG USE FOR UNKNOWN INDICATION
     Route: 065

REACTIONS (9)
  - ABDOMINAL DISCOMFORT [None]
  - ABDOMINAL DISTENSION [None]
  - ABDOMINAL PAIN LOWER [None]
  - ABDOMINAL PAIN UPPER [None]
  - DIZZINESS [None]
  - DYSPEPSIA [None]
  - DYSURIA [None]
  - PALLOR [None]
  - PRESYNCOPE [None]
